FAERS Safety Report 6534014-2 (Version None)
Quarter: 2010Q1

REPORT INFORMATION
  Report Type: 
  Country: None (occurrence: None)
  Receive Date: 20100112
  Receipt Date: 20100105
  Transmission Date: 20100710
  Serious: Yes (Other)
  Sender: FDA-Public Use
  Company Number: CA-JNJFOC-20100101703

PATIENT
  Sex: Female
  Weight: 54 kg

DRUGS (8)
  1. REMICADE [Suspect]
     Indication: CROHN'S DISEASE
     Dosage: DOSE 300
     Route: 042
  2. IMURAN [Concomitant]
     Route: 048
  3. PANCRELIPASE [Concomitant]
     Route: 048
  4. VITAMIN B-12 [Concomitant]
     Dosage: DOSE: SHOT ONCE A MONTH
  5. FOLIC ACID [Concomitant]
  6. VITAMIN D [Concomitant]
  7. CALCIUM [Concomitant]
  8. M.V.I. [Concomitant]

REACTIONS (3)
  - BLOOD PRESSURE INCREASED [None]
  - DIZZINESS [None]
  - FLUSHING [None]
